FAERS Safety Report 4720242-5 (Version None)
Quarter: 2005Q3

REPORT INFORMATION
  Report Type: 
  Country: None (occurrence: None)
  Receive Date: 20050721
  Receipt Date: 20050706
  Transmission Date: 20060218
  Serious: Yes (Life-Threatening, Hospitalization)
  Sender: FDA-Public Use
  Company Number: MK-JNJFOC-20050701870

PATIENT
  Sex: Male
  Weight: 11.8 kg

DRUGS (14)
  1. TOPAMAX [Suspect]
     Route: 048
  2. TOPAMAX [Suspect]
     Indication: PARTIAL SEIZURES
     Route: 048
  3. LAMOTRIGINE [Suspect]
     Indication: EPILEPSY
     Dosage: 25 + 50MG
     Route: 048
  4. PHENOBARBITAL [Concomitant]
     Indication: EPILEPSY
     Route: 030
  5. PARACETEMOL [Concomitant]
     Route: 065
  6. NITROFURANTOIN [Concomitant]
     Route: 048
  7. PHENOXYMETHYL PENICILLIN [Concomitant]
     Route: 048
  8. SULFAMETHOXAZOLE + TRIMETHOPRIM [Concomitant]
     Route: 048
  9. SULFAMETHOXAZOLE + TRIMETHOPRIM [Concomitant]
     Route: 048
  10. CEFTRIAXON [Concomitant]
     Route: 042
  11. CEFTRIAXON [Concomitant]
     Route: 042
  12. CEFUROXIM [Concomitant]
     Route: 048
  13. VALPROATE SODIUM [Concomitant]
     Indication: EPILEPSY
     Route: 048
  14. PRIMIDONE [Concomitant]
     Indication: EPILEPSY
     Route: 048
     Dates: start: 20050718

REACTIONS (8)
  - DRUG INEFFECTIVE [None]
  - EPILEPSY [None]
  - ESCHERICHIA URINARY TRACT INFECTION [None]
  - HAEMATURIA [None]
  - NEPHRITIS INTERSTITIAL [None]
  - PYREXIA [None]
  - RENAL FAILURE ACUTE [None]
  - STATUS EPILEPTICUS [None]
